FAERS Safety Report 6848044-4 (Version None)
Quarter: 2010Q3

REPORT INFORMATION
  Report Type: 
  Country: None (occurrence: None)
  Receive Date: 20100716
  Receipt Date: 20100708
  Transmission Date: 20110219
  Serious: Yes (Hospitalization, Other)
  Sender: FDA-Public Use
  Company Number: DE-ABBOTT-10P-062-0652657-00

PATIENT
  Sex: Female
  Weight: 46.5 kg

DRUGS (3)
  1. HUMIRA [Suspect]
     Indication: CROHN'S DISEASE
     Dates: start: 20071221, end: 20100416
  2. HUMIRA [Suspect]
     Indication: INTESTINAL FISTULA
  3. HUMIRA [Suspect]
     Indication: INTESTINAL STENOSIS

REACTIONS (6)
  - BACK PAIN [None]
  - HAEMORRHOIDS [None]
  - OEDEMA PERIPHERAL [None]
  - PULMONARY EMBOLISM [None]
  - THROMBOSIS [None]
  - VASCULAR OCCLUSION [None]
